FAERS Safety Report 12216273 (Version 1)
Quarter: 2016Q1

REPORT INFORMATION
  Report Type: Spontaneous
  Country: FR (occurrence: FR)
  Receive Date: 20160329
  Receipt Date: 20160329
  Transmission Date: 20160526
  Serious: Yes (Disabling)
  Sender: FDA-Public Use
  Company Number: FR-ASTRAZENECA-2016SE31754

PATIENT
  Age: 61 Year
  Sex: Female

DRUGS (9)
  1. BISOPROLOL [Concomitant]
     Active Substance: BISOPROLOL
  2. AVAMYS [Concomitant]
     Active Substance: FLUTICASONE FUROATE
     Indication: HYPERSENSITIVITY
  3. KESTIN [Suspect]
     Active Substance: EBASTINE
  4. PLAVIX [Concomitant]
     Active Substance: CLOPIDOGREL BISULFATE
  5. AMLOR [Concomitant]
     Active Substance: AMLODIPINE BESYLATE
  6. SYMBICORT [Suspect]
     Active Substance: BUDESONIDE\FORMOTEROL FUMARATE DIHYDRATE
     Indication: HYPERSENSITIVITY
     Dosage: 400, UNKNOWN
     Route: 055
  7. ESOMEPRAZOLE [Suspect]
     Active Substance: ESOMEPRAZOLE
     Indication: GASTRITIS
     Route: 048
  8. ESOMEPRAZOLE [Suspect]
     Active Substance: ESOMEPRAZOLE
     Indication: GASTRITIS
     Route: 048
  9. EZETROL [Suspect]
     Active Substance: EZETIMIBE

REACTIONS (7)
  - Oral pain [Not Recovered/Not Resolved]
  - Glossodynia [Not Recovered/Not Resolved]
  - Dysphonia [Unknown]
  - Tongue discolouration [Not Recovered/Not Resolved]
  - Dry mouth [Not Recovered/Not Resolved]
  - Aphthous ulcer [Not Recovered/Not Resolved]
  - Gingival ulceration [Not Recovered/Not Resolved]

NARRATIVE: CASE EVENT DATE: 2015
